FAERS Safety Report 7530458 (Version 3)
Quarter: 2014Q1

REPORT INFORMATION
  Report Type: Spontaneous
  Country: US (occurrence: US)
  Receive Date: 20100806
  Receipt Date: 20140331
  Transmission Date: 20141002
  Serious: Yes (Hospitalization, Other)
  Sender: FDA-Public Use
  Company Number: US-ALEXION-A201000903

PATIENT
  Age: 31 Year
  Sex: Female
  Weight: 70 kg

DRUGS (9)
  1. SOLIRIS 300MG [Suspect]
     Indication: PAROXYSMAL NOCTURNAL HAEMOGLOBINURIA
     Dosage: 900 MG, Q2W
     Route: 042
     Dates: start: 20070617
  2. ENOXAPARIN [Concomitant]
     Indication: THROMBOSIS PROPHYLAXIS
     Dosage: 600 MG, Q12HR
     Route: 058
  3. DEFEROXAMINE [Concomitant]
     Indication: IRON OVERLOAD
     Dosage: 1000 MG, BID
  4. ASPIRIN [Concomitant]
     Indication: THROMBOSIS PROPHYLAXIS
     Dosage: 81 MG, QD
     Route: 048
  5. ESTRADIOL [Concomitant]
     Indication: OVARIAN FAILURE
     Dosage: .05 MG, 2X/WK
     Route: 062
  6. FOLIC ACID [Concomitant]
     Indication: HAEMOLYSIS
     Dosage: 1 MG, QD
     Route: 048
  7. LEVOTHYROXINE [Concomitant]
     Indication: HYPOTHYROIDISM
     Dosage: 100 UG, QD
     Route: 048
  8. NORMAL SALINE [Concomitant]
     Dosage: 1000 ML, QD
     Route: 042
  9. TYLENOL W/CODEINE NO. 3 [Concomitant]
     Indication: PAIN
     Dosage: UNK, Q4-6HR/PRN

REACTIONS (4)
  - Device related infection [Recovered/Resolved]
  - Pseudomonas infection [Recovered/Resolved]
  - Mental status changes [Unknown]
  - Central venous catheter removal [Unknown]
